FAERS Safety Report 5708632-5 (Version None)
Quarter: 2008Q2

REPORT INFORMATION
  Report Type: 
  Country: None (occurrence: None)
  Receive Date: 20080414
  Receipt Date: 20080414
  Transmission Date: 20081010
  Serious: No
  Sender: FDA-Public Use
  Company Number: None

PATIENT
  Age: 16 Year
  Sex: Male
  Weight: 58.9676 kg

DRUGS (1)
  1. SOLN IVOMEC POUR ON UNK [Suspect]
     Indication: DRUG ADMINISTRATION ERROR
     Dosage: TOP
     Route: 061
     Dates: start: 20080322, end: 20080322

REACTIONS (4)
  - ACCIDENTAL EXPOSURE [None]
  - NAUSEA [None]
  - OCCUPATIONAL EXPOSURE TO TOXIC AGENT [None]
  - SOMNOLENCE [None]
